FAERS Safety Report 6539095-8 (Version None)
Quarter: 2010Q1

REPORT INFORMATION
  Report Type: 
  Country: None (occurrence: None)
  Receive Date: 20100115
  Receipt Date: 20100112
  Transmission Date: 20100710
  Serious: Yes (Death)
  Sender: FDA-Public Use
  Company Number: PHEH2010US00617

PATIENT
  Sex: Female

DRUGS (3)
  1. RECLAST [Suspect]
     Indication: OSTEOPOROSIS
     Dosage: 5 MG ONCE YEARLY
     Dates: start: 20080401
  2. RECLAST [Suspect]
     Dosage: 5 MG ONCE YEARLY
     Dates: start: 20090401
  3. CYCLOSPORINE [Concomitant]

REACTIONS (1)
  - DEATH [None]
